FAERS Safety Report 10731435 (Version 2)
Quarter: 2021Q2

REPORT INFORMATION
  Report Type: Spontaneous
  Country: US (occurrence: US)
  Receive Date: 20150123
  Receipt Date: 20210531
  Transmission Date: 20210716
  Serious: Yes (Hospitalization, Other)
  Sender: FDA-Public Use
  Company Number: US-AUROBINDO-AUR-APL-2015-00309

PATIENT
  Age: 8 Year
  Sex: Male

DRUGS (5)
  1. GUANFACINE. [Interacting]
     Active Substance: GUANFACINE
     Indication: PSYCHOMOTOR HYPERACTIVITY
     Dosage: 3 MG, EVERY MORNING
     Route: 065
  2. DEXMETHYLPHENIDATE [Interacting]
     Active Substance: DEXMETHYLPHENIDATE HYDROCHLORIDE
     Indication: PSYCHOMOTOR HYPERACTIVITY
     Dosage: 20 MG, IN THE MORNING
     Route: 065
  3. RISPERIDONE. [Suspect]
     Active Substance: RISPERIDONE
     Indication: ATTENTION DEFICIT HYPERACTIVITY DISORDER
     Dosage: 0.25 MG, IN THE EVENING
     Route: 065
  4. GUANFACINE. [Interacting]
     Active Substance: GUANFACINE
     Dosage: 5 MG AT NOON
     Route: 048
  5. DEXMETHYLPHENIDATE [Interacting]
     Active Substance: DEXMETHYLPHENIDATE HYDROCHLORIDE
     Dosage: 5 MG, AT NOON
     Route: 065

REACTIONS (8)
  - Sinus bradycardia [Recovered/Resolved]
  - Feeling cold [Recovered/Resolved]
  - Accidental overdose [Recovered/Resolved]
  - Hypotension [Recovered/Resolved]
  - Drug interaction [Recovered/Resolved]
  - Fatigue [Recovered/Resolved]
  - Depressed level of consciousness [Recovered/Resolved]
  - Hyperhidrosis [Recovered/Resolved]
